FAERS Safety Report 7307384-5 (Version None)
Quarter: 2011Q1

REPORT INFORMATION
  Report Type: 
  Country: None (occurrence: None)
  Receive Date: 20110223
  Receipt Date: 20110211
  Transmission Date: 20110831
  Serious: Yes (Hospitalization, Other)
  Sender: FDA-Public Use
  Company Number: PHHY2010CL76540

PATIENT
  Age: 76 Year
  Sex: Female

DRUGS (7)
  1. RADIO-THERAPY [Concomitant]
     Dosage: UNK
     Dates: start: 20101101
  2. DORMONID [Concomitant]
     Dosage: 1 DF, QD
  3. GLAFORNIL [Concomitant]
     Dosage: 1 DF, QD
  4. SUPRACAL [Concomitant]
     Dosage: 3 DF, QD
  5. TAREG D [Suspect]
     Indication: HYPERTENSION
     Dosage: 80 MG VALS AND 12.5 MG HYDR
     Route: 048
  6. CHEMOTHERAPEUTICS NOS [Concomitant]
  7. CELEBRA [Concomitant]
     Dosage: 1 DF, Q12H

REACTIONS (4)
  - BONE NEOPLASM MALIGNANT [None]
  - ALOPECIA [None]
  - BONE PAIN [None]
  - UPPER LIMB FRACTURE [None]
